FAERS Safety Report 26045695 (Version 1)
Quarter: 2025Q4

REPORT INFORMATION
  Report Type: Report from Study
  Country: GB (occurrence: GB)
  Receive Date: 20251114
  Receipt Date: 20251114
  Transmission Date: 20260117
  Serious: Yes (Hospitalization, Other)
  Sender: TEVA
  Company Number: GB-TEVA-VS-3376871

PATIENT
  Age: 58 Year
  Sex: Male

DRUGS (2)
  1. COPAXONE [Suspect]
     Active Substance: GLATIRAMER ACETATE
     Indication: Multiple sclerosis
     Dosage: DOSAGE: 20 MG/ML
     Route: 065
     Dates: start: 20190301
  2. COPAXONE [Suspect]
     Active Substance: GLATIRAMER ACETATE
     Indication: Multiple sclerosis
     Dosage: DOSAGE: 40 MG/ML
     Route: 065
     Dates: start: 20220118

REACTIONS (5)
  - Sepsis [Recovering/Resolving]
  - Hyperhidrosis [Recovering/Resolving]
  - Cellulitis [Recovering/Resolving]
  - Peripheral swelling [Not Recovered/Not Resolved]
  - Immobile [Recovering/Resolving]

NARRATIVE: CASE EVENT DATE: 20250101
